FAERS Safety Report 16497332 (Version 1)
Quarter: 2019Q2

REPORT INFORMATION
  Report Type: Report from Study
  Country: FR (occurrence: FR)
  Receive Date: 20190628
  Receipt Date: 20190628
  Transmission Date: 20190711
  Serious: Yes (Life-Threatening, Hospitalization)
  Sender: FDA-Public Use
  Company Number: FR-PFIZER INC-FR-WYE-G01649708

PATIENT
  Age: 70 Year
  Sex: Female
  Weight: 73 kg

DRUGS (18)
  1. ARACYTINE [Suspect]
     Active Substance: CYTARABINE
     Indication: ACUTE MYELOID LEUKAEMIA
     Dosage: 200 MG/M2, DAY 1 TO DAY 7
     Route: 065
     Dates: start: 20080118, end: 20080124
  2. IMODIUM [Concomitant]
     Active Substance: LOPERAMIDE HYDROCHLORIDE
     Dosage: 2 MG, 4X/DAY
     Route: 048
     Dates: start: 20080126, end: 20080202
  3. TIORFAN [Concomitant]
     Active Substance: RACECADOTRIL
     Dosage: 100 MG, 4X/DAY
     Route: 048
     Dates: start: 20080124, end: 20080129
  4. PROPOFAN [Concomitant]
     Active Substance: ACETAMINOPHEN\CAFFEINE\PROPOXYPHENE
     Dosage: UNK
     Route: 048
  5. PROCTOLOG [Concomitant]
     Active Substance: TRIMEBUTINE
     Dosage: UNK
  6. VANCOMYCIN [Concomitant]
     Active Substance: VANCOMYCIN
     Indication: STAPHYLOCOCCAL SEPSIS
     Dosage: UNK
     Dates: start: 20080118, end: 20080125
  7. ACUILIX [Concomitant]
     Active Substance: HYDROCHLOROTHIAZIDE\QUINAPRIL HYDROCHLORIDE
     Dosage: 1 DF, DAILY
     Route: 048
     Dates: end: 20080125
  8. DIOVENOR [Concomitant]
     Active Substance: DIOSMIN
     Dosage: UNK
     Route: 048
  9. MOBIC [Concomitant]
     Active Substance: MELOXICAM
     Dosage: UNK
  10. DAUNORUBICIN [Suspect]
     Active Substance: DAUNORUBICIN
     Indication: ACUTE MYELOID LEUKAEMIA
     Dosage: 60 MG/M2, FROM DAY 1 TO DAY 3
     Route: 065
     Dates: start: 20080118, end: 20080120
  11. AMLOR [Concomitant]
     Active Substance: AMLODIPINE BESYLATE
     Dosage: 5 MG, DAILY
     Route: 048
     Dates: end: 20080125
  12. TAZOCILLINE [Concomitant]
     Active Substance: PIPERACILLIN SODIUM\TAZOBACTAM SODIUM
     Dosage: 12 G, DAILY
     Route: 042
     Dates: end: 20080202
  13. ZYLORIC [Concomitant]
     Active Substance: ALLOPURINOL
     Dosage: UNK
     Route: 048
  14. INEXIUM [Concomitant]
     Active Substance: ESOMEPRAZOLE
     Dosage: 40 MG, DAILY
     Route: 048
     Dates: end: 20080126
  15. FORLAX [Concomitant]
     Active Substance: POLYETHYLENE GLYCOL 4000
     Dosage: UNK
     Route: 048
  16. REVIA [Concomitant]
     Active Substance: NALTREXONE HYDROCHLORIDE
     Dosage: UNK
     Route: 048
  17. MYLOTARG [Suspect]
     Active Substance: GEMTUZUMAB OZOGAMICIN
     Indication: ACUTE MYELOID LEUKAEMIA
     Dosage: 3 MG/M2 DAILY ON DAY 1, 4, 7
     Route: 041
     Dates: start: 20080118, end: 20080124
  18. EQUANIL [Concomitant]
     Active Substance: MEPROBAMATE
     Dosage: UNK
     Route: 048
     Dates: end: 20080204

REACTIONS (7)
  - Gastrointestinal haemorrhage [Recovered/Resolved]
  - Renal failure [Unknown]
  - Liver disorder [Not Recovered/Not Resolved]
  - Candida sepsis [Unknown]
  - Diarrhoea [Unknown]
  - Abdominal pain [Unknown]
  - Mucosal inflammation [Unknown]

NARRATIVE: CASE EVENT DATE: 2008
